FAERS Safety Report 6032412-7 (Version None)
Quarter: 2008Q4

REPORT INFORMATION
  Report Type: 
  Country: None (occurrence: None)
  Receive Date: 20081222
  Receipt Date: 20080902
  Transmission Date: 20090506
  Serious: No
  Sender: FDA-Public Use
  Company Number: US-WYE-H05875008

PATIENT
  Age: 80 Year
  Sex: Female
  Weight: 68.1 kg

DRUGS (7)
  1. PRISTIQ [Suspect]
     Indication: DEPRESSION
     Dosage: ^50 MG ON AND OFF^, ORAL 50 MG 1X PER 1 DAY, ORAL
     Route: 048
     Dates: start: 20080801
  2. PRISTIQ [Suspect]
     Indication: DEPRESSION
     Dosage: ^50 MG ON AND OFF^, ORAL 50 MG 1X PER 1 DAY, ORAL
     Route: 048
     Dates: start: 20081001
  3. COZAAR [Concomitant]
  4. PLAVIX [Concomitant]
  5. TOPROL-XL [Concomitant]
  6. LORAZEPAM [Concomitant]
  7. NEXIUM [Concomitant]

REACTIONS (5)
  - DEPRESSION [None]
  - DRUG WITHDRAWAL SYNDROME [None]
  - FEELING JITTERY [None]
  - NERVOUSNESS [None]
  - SOMNOLENCE [None]
